FAERS Safety Report 9220295 (Version 1)
Quarter: 2013Q1

REPORT INFORMATION
  Report Type: Spontaneous
  Country: US (occurrence: None)
  Receive Date: 20120830
  Receipt Date: 20120830
  Transmission Date: 20140127
  Serious: Yes (Other)
  Sender: FDA-Public Use
  Company Number: US008631

PATIENT
  Age: 29 Year
  Sex: Male
  Weight: 77 kg

DRUGS (1)
  1. GABITRIL (TIAGABINE) [Suspect]
     Indication: GRAND MAL CONVULSION
     Route: 048
     Dates: start: 19980625

REACTIONS (1)
  - Unevaluable event [None]
